FAERS Safety Report 23192522 (Version 10)
Quarter: 2025Q4

REPORT INFORMATION
  Report Type: Other
  Country: US (occurrence: US)
  Receive Date: 20231116
  Receipt Date: 20251021
  Transmission Date: 20260117
  Serious: Yes (Other)
  Sender: TRAVERE THERAPEUTICS
  Company Number: US-TRAVERE-2023TVT00682

PATIENT
  Age: 54 Year
  Sex: Male

DRUGS (19)
  1. FILSPARI [Suspect]
     Active Substance: SPARSENTAN
     Indication: IgA nephropathy
     Dosage: 200 MG
     Route: 048
     Dates: start: 20230926
  2. FILSPARI [Suspect]
     Active Substance: SPARSENTAN
     Indication: End stage renal disease
     Dosage: 400 MG
     Route: 048
     Dates: end: 202312
  3. FILSPARI [Suspect]
     Active Substance: SPARSENTAN
     Dosage: FREQUENCY: EVERY OTHER DAY
     Route: 048
  4. FILSPARI [Suspect]
     Active Substance: SPARSENTAN
     Dosage: 400 MG
     Route: 048
     Dates: start: 20240821
  5. D3-5000 [Concomitant]
  6. CARVEDILOL [Concomitant]
     Active Substance: CARVEDILOL
  7. VALSARTAN [Concomitant]
     Active Substance: VALSARTAN
  8. COENZYME Q10 [Concomitant]
     Active Substance: DIETARY SUPPLEMENT\UBIDECARENONE
  9. FISH OIL [Concomitant]
     Active Substance: FISH OIL
  10. WARFARIN SODIUM [Concomitant]
     Active Substance: WARFARIN SODIUM
  11. PREDNISONE [Concomitant]
     Active Substance: PREDNISONE
  12. ENVARSUS XR [Concomitant]
     Active Substance: TACROLIMUS
  13. MYFORTIC [Concomitant]
     Active Substance: MYCOPHENOLATE SODIUM
  14. ALPHA LIPOIC [Concomitant]
  15. LYSINE [Concomitant]
     Active Substance: LYSINE
  16. MAGNESIUM GLYCINATE [Concomitant]
     Active Substance: MAGNESIUM GLYCINATE
  17. FUROSEMIDE [Concomitant]
     Active Substance: FUROSEMIDE
  18. KRILL OIL [Concomitant]
     Active Substance: DIETARY SUPPLEMENT\KRILL OIL
  19. INOSITOL NIACINATE [Concomitant]
     Active Substance: INOSITOL NIACINATE

REACTIONS (10)
  - Pulmonary congestion [None]
  - Testicular swelling [None]
  - Contraindicated product prescribed [Unknown]
  - Weight increased [None]
  - Fluid retention [None]
  - Blood urea increased [Unknown]
  - Product dose omission issue [Unknown]
  - Glomerular filtration rate decreased [Unknown]
  - Off label use [Unknown]
  - Generalised oedema [Recovering/Resolving]
